FAERS Safety Report 5659099-7 (Version None)
Quarter: 2008Q1

REPORT INFORMATION
  Report Type: 
  Country: None (occurrence: None)
  Receive Date: 20080219
  Receipt Date: 20071211
  Transmission Date: 20080703
  Serious: No
  Sender: FDA-Public Use
  Company Number: WAES 0710USA00625

PATIENT
  Age: 75 Year
  Sex: Male
  Weight: 94.3482 kg

DRUGS (14)
  1. JANUVIA [Suspect]
     Indication: DIABETES MELLITUS
     Dosage: 100 MG/DAILY/PO ; 100 MG/DAILY/PO
     Route: 048
     Dates: start: 20070125, end: 20070201
  2. JANUVIA [Suspect]
     Indication: DIABETES MELLITUS
     Dosage: 100 MG/DAILY/PO ; 100 MG/DAILY/PO
     Route: 048
     Dates: start: 20070201, end: 20070215
  3. AGGRENOX [Concomitant]
  4. ALTACE [Concomitant]
  5. BENICAR [Concomitant]
  6. FLOMAX (MORNIFLUMATE) [Concomitant]
  7. GLUCOPHAGE [Concomitant]
  8. LIPITOR [Concomitant]
  9. NORVASC [Concomitant]
  10. OCUPRESS [Concomitant]
  11. PROSCAR [Concomitant]
  12. TOPROL-XL [Concomitant]
  13. GLYBURIDE [Concomitant]
  14. TRIAMTERENE AND HYDROCHLOROTHIAZIDE [Concomitant]

REACTIONS (1)
  - RASH PRURITIC [None]
